FAERS Safety Report 20021828 (Version 1)
Quarter: 2021Q4

REPORT INFORMATION
  Report Type: Report from Study
  Country: RO (occurrence: RO)
  Receive Date: 20211101
  Receipt Date: 20211101
  Transmission Date: 20220303
  Serious: Yes (Death, Other)
  Sender: FDA-Public Use
  Company Number: RO-SUN PHARMACEUTICAL INDUSTRIES LTD-2021R1-315815

PATIENT
  Sex: Male

DRUGS (1)
  1. METHIMAZOLE [Suspect]
     Active Substance: METHIMAZOLE
     Indication: Hyperthyroidism
     Dosage: 45 MILLIGRAM, DAILY
     Route: 064

REACTIONS (3)
  - Respiratory distress [Fatal]
  - Foetal exposure during pregnancy [Unknown]
  - Premature baby [Unknown]
